FAERS Safety Report 5417976-6 (Version None)
Quarter: 2007Q3

REPORT INFORMATION
  Report Type: 
  Country: None (occurrence: None)
  Receive Date: 20070815
  Receipt Date: 20070802
  Transmission Date: 20080115
  Serious: Yes (Hospitalization, Other)
  Sender: FDA-Public Use
  Company Number: 237848K06USA

PATIENT
  Age: 38 Year
  Sex: Female

DRUGS (4)
  1. REBIF [Suspect]
     Indication: MULTIPLE SCLEROSIS
     Dosage: 44 MCG, 3 IN 1 WEEKS, SUBCUTANEOUS
     Route: 058
     Dates: start: 20040607, end: 20061129
  2. MIRAPEX [Concomitant]
  3. ZOLOFT [Concomitant]
  4. AMITRIPTYLINE HCL [Concomitant]

REACTIONS (7)
  - ACCIDENT [None]
  - IMPAIRED HEALING [None]
  - INJURY [None]
  - MUSCLE HAEMORRHAGE [None]
  - SEROMA [None]
  - SUBCUTANEOUS ABSCESS [None]
  - THORACIC VERTEBRAL FRACTURE [None]
